FAERS Safety Report 17444138 (Version 1)
Quarter: 2020Q1

REPORT INFORMATION
  Report Type: Spontaneous
  Country: US (occurrence: US)
  Receive Date: 20200207
  Receipt Date: 20200207
  Transmission Date: 20200409
  Serious: Yes (Hospitalization)
  Sender: FDA-Public Use
  Company Number: None

PATIENT
  Sex: Female

DRUGS (4)
  1. ATENOLOL. [Concomitant]
     Active Substance: ATENOLOL
  2. PROCHLORPER [Concomitant]
  3. SPRYCEL [Suspect]
     Active Substance: DASATINIB
     Indication: LYMPHOCYTIC LEUKAEMIA
     Route: 048
     Dates: start: 20200115
  4. PAROXETINE. [Concomitant]
     Active Substance: PAROXETINE

REACTIONS (1)
  - Vascular device infection [None]
